FAERS Safety Report 25451025 (Version 1)
Quarter: 2025Q2

REPORT INFORMATION
  Report Type: Spontaneous
  Country: UZ (occurrence: UZ)
  Receive Date: 20250618
  Receipt Date: 20250618
  Transmission Date: 20250716
  Serious: Yes (Other)
  Sender: BIOCODEX
  Company Number: UZ-BIOCODEX2-2025000931

PATIENT
  Age: 39 Month
  Sex: Female

DRUGS (2)
  1. DIACOMIT [Suspect]
     Active Substance: STIRIPENTOL
     Indication: Severe myoclonic epilepsy of infancy
     Route: 065
  2. Konuvleks [Concomitant]
     Indication: Severe myoclonic epilepsy of infancy

REACTIONS (3)
  - Seizure [Unknown]
  - Suspected counterfeit product [Unknown]
  - Off label use [Unknown]
